FAERS Safety Report 5612233-7 (Version None)
Quarter: 2008Q1

REPORT INFORMATION
  Report Type: 
  Country: None (occurrence: None)
  Receive Date: 20080131
  Receipt Date: 20080131
  Transmission Date: 20080703
  Serious: No
  Sender: FDA-Public Use
  Company Number: None

PATIENT
  Age: 6 Year
  Sex: Female
  Weight: 19.9583 kg

DRUGS (1)
  1. CEFPROZIL [Suspect]
     Indication: PHARYNGITIS STREPTOCOCCAL
     Dosage: 1 TEASPOONFUL TWICE A DAY PO
     Route: 048
     Dates: start: 20080129, end: 20080130

REACTIONS (3)
  - PYREXIA [None]
  - RASH [None]
  - URTICARIA [None]
